FAERS Safety Report 7303450-9 (Version None)
Quarter: 2011Q1

REPORT INFORMATION
  Report Type: 
  Country: None (occurrence: None)
  Receive Date: 20110221
  Receipt Date: 20101220
  Transmission Date: 20110831
  Serious: Yes (Hospitalization, Other)
  Sender: FDA-Public Use
  Company Number: US-BAYER-201027523NA

PATIENT
  Sex: Female

DRUGS (11)
  1. YASMIN [Suspect]
     Indication: UTERINE HAEMORRHAGE
  2. OCELLA [Suspect]
     Indication: ORAL CONTRACEPTION
     Route: 048
     Dates: start: 20080701
  3. YASMIN [Suspect]
     Indication: ORAL CONTRACEPTION
     Route: 048
     Dates: start: 20080701
  4. VERAPAMIL [Concomitant]
  5. SIMVASTATIN [Concomitant]
  6. YAZ [Suspect]
     Indication: ORAL CONTRACEPTION
     Route: 048
     Dates: start: 20080701
  7. OCELLA [Suspect]
     Indication: UTERINE HAEMORRHAGE
  8. BETA BLOCKING AGENTS [Concomitant]
  9. YAZ [Suspect]
     Indication: UTERINE HAEMORRHAGE
  10. LISINOPRIL [Concomitant]
  11. ALBUTEROL [Concomitant]

REACTIONS (19)
  - SINUS TACHYCARDIA [None]
  - CARDIAC FAILURE CONGESTIVE [None]
  - FATIGUE [None]
  - ORTHOPNOEA [None]
  - GALLBLADDER DISORDER [None]
  - DYSPNOEA [None]
  - CHEST PAIN [None]
  - DIZZINESS [None]
  - DYSPNOEA PAROXYSMAL NOCTURNAL [None]
  - TROPONIN INCREASED [None]
  - LEUKOCYTOSIS [None]
  - MYOCARDIAL INFARCTION [None]
  - DEEP VEIN THROMBOSIS [None]
  - NAUSEA [None]
  - MUSCLE TIGHTNESS [None]
  - PULMONARY EMBOLISM [None]
  - PALPITATIONS [None]
  - RESPIRATORY DISTRESS [None]
  - CEREBROVASCULAR ACCIDENT [None]
